FAERS Safety Report 17174499 (Version 1)
Quarter: 2019Q4

REPORT INFORMATION
  Report Type: Spontaneous
  Country: CN (occurrence: CN)
  Receive Date: 20191219
  Receipt Date: 20191219
  Transmission Date: 20200122
  Serious: Yes (Hospitalization)
  Sender: FDA-Public Use
  Company Number: CN-GUERBET-CN-20190197

PATIENT
  Age: 61 Year
  Sex: Male

DRUGS (3)
  1. ENTECAVIR. [Concomitant]
     Active Substance: ENTECAVIR
     Indication: HEPATITIS B
  2. LIPIODOL [Suspect]
     Active Substance: ETHIODIZED OIL
     Indication: TRANSCATHETER ARTERIAL CHEMOEMBOLISATION
     Route: 013
  3. EPIRUBICIN [Concomitant]
     Active Substance: EPIRUBICIN
     Indication: TRANSCATHETER ARTERIAL CHEMOEMBOLISATION

REACTIONS (4)
  - Haemorrhagic necrotic pancreatitis [Recovered/Resolved]
  - Product use in unapproved indication [Recovered/Resolved]
  - Post embolisation syndrome [Recovered/Resolved]
  - Embolism [Recovered/Resolved]
